FAERS Safety Report 15713737 (Version 1)
Quarter: 2018Q4

REPORT INFORMATION
  Report Type: Spontaneous
  Country: FR (occurrence: FR)
  Receive Date: 20181212
  Receipt Date: 20181212
  Transmission Date: 20190205
  Serious: Yes (Hospitalization)
  Sender: FDA-Public Use
  Company Number: FR-PFIZER INC-2018503570

PATIENT
  Age: 24 Year
  Sex: Female
  Weight: 70 kg

DRUGS (4)
  1. SPIFEN [Suspect]
     Active Substance: IBUPROFEN
     Dosage: 4000 MG, SINGLE
     Route: 048
     Dates: start: 20180221, end: 20180221
  2. CELECOXIB. [Suspect]
     Active Substance: CELECOXIB
     Dosage: 10 DF, SINGLE
     Route: 048
     Dates: start: 20180221, end: 20180221
  3. LAMALINE (ACETAMINOPHEN\CAFFEINE\OPIUM) [Suspect]
     Active Substance: ACETAMINOPHEN\CAFFEINE\OPIUM
     Dosage: 16 DF, SINGLE
     Route: 048
     Dates: start: 20180221, end: 20180221
  4. ACTISKENAN [Suspect]
     Active Substance: MORPHINE SULFATE
     Dosage: 280 MG, SINGLE
     Route: 048
     Dates: start: 20180221, end: 20180221

REACTIONS (2)
  - Nausea [Recovered/Resolved]
  - Toxicity to various agents [Unknown]

NARRATIVE: CASE EVENT DATE: 20180221
